FAERS Safety Report 9439686 (Version 1)
Quarter: 2013Q3

REPORT INFORMATION
  Report Type: Spontaneous
  Country: US (occurrence: US)
  Receive Date: 20130805
  Receipt Date: 20130805
  Transmission Date: 20140515
  Serious: No
  Sender: FDA-Public Use
  Company Number: US-PFIZER INC-2013224924

PATIENT
  Age: 59 Year
  Sex: Female
  Weight: 61.22 kg

DRUGS (2)
  1. LYRICA [Suspect]
     Indication: MORTON^S NEURALGIA
     Dosage: 75 MG, 2X/DAY
     Route: 048
     Dates: start: 201307, end: 201307
  2. INDOMETHACIN [Concomitant]
     Dosage: 50 MG

REACTIONS (3)
  - Off label use [Unknown]
  - Paraesthesia [Unknown]
  - Paraesthesia [Unknown]
